FAERS Safety Report 10512282 (Version 2)
Quarter: 2014Q4

REPORT INFORMATION
  Report Type: Spontaneous
  Country: DK (occurrence: DK)
  Receive Date: 20141010
  Receipt Date: 20141125
  Transmission Date: 20150528
  Serious: No
  Sender: FDA-Public Use
  Company Number: CHPA2014DK013766

PATIENT
  Sex: Female

DRUGS (1)
  1. LAMISIL [Suspect]
     Active Substance: TERBINAFINE HYDROCHLORIDE
     Indication: TINEA PEDIS
     Dosage: UNK
     Route: 065

REACTIONS (4)
  - Incorrect drug administration duration [Unknown]
  - Drug ineffective [Unknown]
  - Pruritus [Unknown]
  - Blister [Unknown]
